FAERS Safety Report 4568226-4 (Version None)
Quarter: 2005Q1

REPORT INFORMATION
  Report Type: 
  Country: None (occurrence: None)
  Receive Date: 20050131
  Receipt Date: 20050119
  Transmission Date: 20050727
  Serious: Yes (Other)
  Sender: FDA-Public Use
  Company Number: 2005016162

PATIENT
  Age: 70 Year
  Sex: Male
  Weight: 95.2554 kg

DRUGS (2)
  1. ROLAIDS [Suspect]
     Indication: DYSPEPSIA
     Dosage: 2-3 TABLETS, PRN/1 BOTTLE MONTHLY, ORAL
     Route: 048
  2. ATENOLOL [Concomitant]

REACTIONS (1)
  - TESTICULAR NEOPLASM [None]
